FAERS Safety Report 7609526-0 (Version None)
Quarter: 2011Q3

REPORT INFORMATION
  Report Type: 
  Country: None (occurrence: None)
  Receive Date: 20110706
  Receipt Date: 20110628
  Transmission Date: 20111222
  Serious: Yes (Disabling)
  Sender: FDA-Public Use
  Company Number: GER/UKI/11/0017495

PATIENT
  Age: 58 Year
  Sex: Male
  Weight: 84.82 kg

DRUGS (6)
  1. FEXOFENADINE HCL [Concomitant]
  2. FLOXACILLIN SODIUM [Concomitant]
  3. AMLODIPINE [Suspect]
     Indication: PRODUCT USED FOR UNKNOWN INDICATION
     Dates: start: 20101004
  4. RAMIPRIL [Concomitant]
  5. EPADERM (PARAFFIN) [Concomitant]
  6. PROPRANOLOL [Concomitant]

REACTIONS (2)
  - RASH MACULAR [None]
  - BLISTER [None]
